FAERS Safety Report 6929356-2 (Version None)
Quarter: 2010Q3

REPORT INFORMATION
  Report Type: 
  Country: None (occurrence: None)
  Receive Date: 20100818
  Receipt Date: 20100806
  Transmission Date: 20110219
  Serious: Yes (Hospitalization)
  Sender: FDA-Public Use
  Company Number: US-JNJFOC-20100703067

PATIENT
  Sex: Male
  Weight: 90.72 kg

DRUGS (8)
  1. INVEGA SUSTENNA [Suspect]
     Indication: SCHIZOPHRENIA
     Route: 030
  2. INVEGA SUSTENNA [Suspect]
     Route: 030
  3. DEPAKOTE [Concomitant]
     Indication: AFFECTIVE DISORDER
     Route: 048
  4. INVEGA [Concomitant]
     Indication: SCHIZOPHRENIA
     Route: 048
  5. PROLIXIN [Concomitant]
     Indication: SCHIZOPHRENIA
     Route: 048
  6. KLONOPIN [Concomitant]
     Indication: ANXIETY
     Route: 048
  7. METFORMIN [Concomitant]
     Indication: DIABETES MELLITUS
     Route: 048
  8. AN UNKNOWN MEDICATION [Concomitant]
     Indication: HYPERTENSION
     Route: 048

REACTIONS (2)
  - INAPPROPRIATE SCHEDULE OF DRUG ADMINISTRATION [None]
  - PSYCHIATRIC SYMPTOM [None]
